FAERS Safety Report 14953709 (Version 4)
Quarter: 2019Q1

REPORT INFORMATION
  Report Type: Report from Study
  Country: US (occurrence: US)
  Receive Date: 20180530
  Receipt Date: 20190315
  Transmission Date: 20190417
  Serious: Yes (Death, Hospitalization)
  Sender: FDA-Public Use
  Company Number: US-ACTELION-A-NJ2018-165379

PATIENT
  Age: 80 Year
  Sex: Female

DRUGS (6)
  1. OPSUMIT [Suspect]
     Active Substance: MACITENTAN
     Indication: PULMONARY ARTERIAL HYPERTENSION
     Dosage: 10 MG, QD
     Route: 048
     Dates: start: 201708, end: 20181224
  2. LOVASTATIN. [Concomitant]
     Active Substance: LOVASTATIN
     Dosage: 20 MG, UNK
     Route: 048
  3. POTASSIUM [Concomitant]
     Active Substance: POTASSIUM
     Dosage: 20 UNK, QD
  4. LASIX [Concomitant]
     Active Substance: FUROSEMIDE
     Dosage: 40 MG, UNK
     Route: 048
  5. PANTOPRAZOLE [Concomitant]
     Active Substance: PANTOPRAZOLE
     Dosage: 20 MG, UNK
     Route: 048
  6. COUMADIN [Concomitant]
     Active Substance: WARFARIN SODIUM
     Dosage: 5 MG, UNK
     Route: 048

REACTIONS (14)
  - Unevaluable event [Unknown]
  - Oropharyngeal pain [Recovering/Resolving]
  - Pulmonary hypertension [Fatal]
  - Hypoxia [Unknown]
  - Tachypnoea [Unknown]
  - Swelling face [Unknown]
  - Cough [Not Recovered/Not Resolved]
  - Generalised oedema [Recovering/Resolving]
  - Condition aggravated [Recovering/Resolving]
  - Localised infection [Recovering/Resolving]
  - Dyspnoea [Unknown]
  - Productive cough [Not Recovered/Not Resolved]
  - Cardiac failure congestive [Fatal]
  - Tachycardia [Unknown]

NARRATIVE: CASE EVENT DATE: 2017
